FAERS Safety Report 15605183 (Version 2)
Quarter: 2018Q4

REPORT INFORMATION
  Report Type: Spontaneous
  Country: US (occurrence: US)
  Receive Date: 20181112
  Receipt Date: 20181122
  Transmission Date: 20190205
  Serious: No
  Sender: FDA-Public Use
  Company Number: US-BIOGEN-2018BI00642950

PATIENT
  Sex: Female

DRUGS (1)
  1. TECFIDERA [Suspect]
     Active Substance: DIMETHYL FUMARATE
     Indication: MULTIPLE SCLEROSIS
     Dosage: TAKE 1 CAPSULE BY MOUTH TWICE DAILY
     Route: 048
     Dates: start: 20180926

REACTIONS (9)
  - Nasopharyngitis [Not Recovered/Not Resolved]
  - Flushing [Recovered/Resolved with Sequelae]
  - Product dose omission [Unknown]
  - Headache [Unknown]
  - Paraesthesia [Not Recovered/Not Resolved]
  - Intentional underdose [Unknown]
  - Multiple sclerosis relapse [Not Recovered/Not Resolved]
  - Female sterilisation [Unknown]
  - Rash macular [Recovered/Resolved]
